FAERS Safety Report 15858368 (Version 2)
Quarter: 2019Q2

REPORT INFORMATION
  Report Type: Spontaneous
  Country: US (occurrence: US)
  Receive Date: 20190123
  Receipt Date: 20190411
  Transmission Date: 20190711
  Serious: No
  Sender: FDA-Public Use
  Company Number: US-PFIZER INC-2019029930

PATIENT
  Age: 85 Year
  Sex: Male
  Weight: 122.4 kg

DRUGS (1)
  1. SILDENAFIL CITRATE. [Suspect]
     Active Substance: SILDENAFIL CITRATE
     Indication: PULMONARY HYPERTENSION
     Dosage: 20 MG, TWICE A DAY
     Route: 048
     Dates: start: 20181203

REACTIONS (2)
  - Intentional product misuse [Unknown]
  - Dizziness [Unknown]

NARRATIVE: CASE EVENT DATE: 20181203
